FAERS Safety Report 23646694 (Version 2)
Quarter: 2024Q2

REPORT INFORMATION
  Report Type: Spontaneous
  Country: US (occurrence: US)
  Receive Date: 20240319
  Receipt Date: 20240402
  Transmission Date: 20240716
  Serious: Yes (Other)
  Sender: FDA-Public Use
  Company Number: US-ROCHE-3528051

PATIENT
  Age: 4 Year
  Sex: Male
  Weight: 18.6 kg

DRUGS (3)
  1. ELEVIDYS [Suspect]
     Active Substance: DELANDISTROGENE MOXEPARVOVEC-ROKL
     Indication: Duchenne muscular dystrophy
     Dosage: 187 MILLILITER, SINGLE
     Route: 042
     Dates: start: 20240307, end: 20240307
  2. PREDNISOLONE [Concomitant]
     Active Substance: PREDNISOLONE
     Indication: In vivo gene therapy
     Dosage: 27 MILLIGRAM, QD
     Dates: start: 20240229
  3. FAMOTIDINE [Concomitant]
     Active Substance: FAMOTIDINE
     Indication: In vivo gene therapy
     Dosage: 16 MILLIGRAM, QD
     Dates: start: 20240229

REACTIONS (7)
  - Hypersensitivity [Recovered/Resolved]
  - Flushing [Recovered/Resolved]
  - Rash erythematous [Recovered/Resolved]
  - Urticaria [Recovered/Resolved]
  - Erythema [Recovered/Resolved]
  - Feeling hot [Recovered/Resolved]
  - Incorrect dose administered [Unknown]

NARRATIVE: CASE EVENT DATE: 20240307
